FAERS Safety Report 21452516 (Version 3)
Quarter: 2022Q4

REPORT INFORMATION
  Report Type: Report from Study
  Country: BR (occurrence: None)
  Receive Date: 20221013
  Receipt Date: 20221021
  Transmission Date: 20230113
  Serious: Yes (Hospitalization)
  Sender: FDA-Public Use
  Company Number: BR-ROCHE-3176159

PATIENT
  Age: 27 Year
  Sex: Male
  Weight: 62 kg

DRUGS (14)
  1. OCRELIZUMAB [Suspect]
     Active Substance: OCRELIZUMAB
     Indication: Progressive multiple sclerosis
     Dosage: DATE OF MOST RECENT DOSE OF OCRELIZUMAB PRIOR TO THIS AE/SAE ONSET:06/JUN/2022, DOSE OF LAST OCRELIZ
     Route: 042
     Dates: start: 20210629
  2. METHYLPREDNISOLONE [Concomitant]
     Active Substance: METHYLPREDNISOLONE
     Route: 042
     Dates: start: 20220824, end: 20220826
  3. INVESTIGATIONAL PRODUCT [Concomitant]
     Active Substance: INVESTIGATIONAL PRODUCT
     Indication: Prophylaxis
     Route: 030
     Dates: start: 20210924, end: 20210924
  4. INVESTIGATIONAL PRODUCT [Concomitant]
     Active Substance: INVESTIGATIONAL PRODUCT
     Route: 030
     Dates: start: 20211022, end: 20211022
  5. DEXAMETHASONE [Concomitant]
     Active Substance: DEXAMETHASONE
     Dosage: BASELINE WEEK 0 (1)
     Route: 042
     Dates: start: 20210629, end: 20210629
  6. DEXAMETHASONE [Concomitant]
     Active Substance: DEXAMETHASONE
     Dosage: VISIT 3 WEEK 2 (1)
     Route: 042
     Dates: start: 20210713, end: 20210713
  7. DEXAMETHASONE [Concomitant]
     Active Substance: DEXAMETHASONE
     Dosage: VISIT 4 WEEK 24 (1)
     Route: 042
     Dates: start: 20211221, end: 20211221
  8. DEXAMETHASONE [Concomitant]
     Active Substance: DEXAMETHASONE
     Dosage: VISIT 5 WEEK 48 (1)
     Route: 042
     Dates: start: 20220606, end: 20220606
  9. DIPHENHYDRAMINE [Concomitant]
     Active Substance: DIPHENHYDRAMINE
     Route: 042
     Dates: start: 20210629, end: 20210629
  10. DIPHENHYDRAMINE [Concomitant]
     Active Substance: DIPHENHYDRAMINE
     Route: 042
     Dates: start: 20210713, end: 20210713
  11. DIPHENHYDRAMINE [Concomitant]
     Active Substance: DIPHENHYDRAMINE
     Route: 042
     Dates: start: 20211221, end: 20211221
  12. DIPHENHYDRAMINE [Concomitant]
     Active Substance: DIPHENHYDRAMINE
     Route: 042
     Dates: start: 20220606, end: 20220606
  13. ACETAMINOPHEN [Concomitant]
     Active Substance: ACETAMINOPHEN
     Route: 048
     Dates: start: 20220606, end: 20220606
  14. TYLENOL [Concomitant]
     Active Substance: ACETAMINOPHEN
     Dosage: SUBSEQUENT DOSES ON: 13/JUL/2021, 21/DEC/2021
     Route: 048
     Dates: start: 20210629, end: 20210629

REACTIONS (1)
  - Mononucleosis syndrome [Recovered/Resolved]

NARRATIVE: CASE EVENT DATE: 20220828
